FAERS Safety Report 6399567-6 (Version None)
Quarter: 2009Q4

REPORT INFORMATION
  Report Type: 
  Country: None (occurrence: None)
  Receive Date: 20091014
  Receipt Date: 20070709
  Transmission Date: 20100525
  Serious: Yes (Other)
  Sender: FDA-Public Use
  Company Number: US-ASTRAZENECA-2006UW27797

PATIENT
  Age: 17460 Day
  Sex: Female
  Weight: 151.5 kg

DRUGS (12)
  1. SEROQUEL [Suspect]
     Indication: BIPOLAR DISORDER
     Dosage: 25-400 MG
     Route: 048
     Dates: start: 20010604
  2. SEROQUEL [Suspect]
     Indication: DEPRESSION
     Dosage: 25-400 MG
     Route: 048
     Dates: start: 20010604
  3. SEROQUEL [Suspect]
     Indication: INSOMNIA
     Dosage: 25-400 MG
     Route: 048
     Dates: start: 20010604
  4. SEROQUEL [Suspect]
     Dosage: DO NOT RECALL DOSE
     Route: 048
     Dates: start: 20030101, end: 20060101
  5. SEROQUEL [Suspect]
     Dosage: DO NOT RECALL DOSE
     Route: 048
     Dates: start: 20030101, end: 20060101
  6. SEROQUEL [Suspect]
     Dosage: DO NOT RECALL DOSE
     Route: 048
     Dates: start: 20030101, end: 20060101
  7. KLONOPIN [Concomitant]
     Indication: ANXIETY
     Route: 048
     Dates: start: 20001113
  8. CELEXA [Concomitant]
     Indication: DEPRESSION
     Dosage: 40-80 MG
     Route: 048
     Dates: start: 20011227
  9. PAXIL [Concomitant]
     Route: 048
     Dates: start: 19980826
  10. ESKALITH [Concomitant]
     Dosage: 1350-1575 MG
     Route: 048
     Dates: start: 19970428
  11. TRAZODONE [Concomitant]
     Dosage: 100-300 MG
     Route: 048
     Dates: start: 19930819
  12. ZYPREXA [Concomitant]
     Dosage: 10-15 MG
     Route: 048
     Dates: start: 20030319

REACTIONS (4)
  - DIABETES MELLITUS [None]
  - DIABETIC NEUROPATHY [None]
  - HYPOGLYCAEMIA [None]
  - TYPE 2 DIABETES MELLITUS [None]
